FAERS Safety Report 13756006 (Version 1)
Quarter: 2017Q3

REPORT INFORMATION
  Report Type: Spontaneous
  Country: US (occurrence: US)
  Receive Date: 20170714
  Receipt Date: 20170714
  Transmission Date: 20171127
  Serious: No
  Sender: FDA-Public Use
  Company Number: US-PFIZER INC-2017304673

PATIENT
  Age: 60 Year
  Sex: Female

DRUGS (1)
  1. XELJANZ XR [Suspect]
     Active Substance: TOFACITINIB CITRATE
     Dosage: 11 MG, UNK

REACTIONS (15)
  - Constipation [Unknown]
  - Depression [Unknown]
  - Fatigue [Unknown]
  - Musculoskeletal pain [Unknown]
  - Exercise tolerance decreased [Unknown]
  - Arthralgia [Unknown]
  - Dyspepsia [Unknown]
  - Hypoaesthesia [Unknown]
  - Sleep disorder [Unknown]
  - Poor quality sleep [Unknown]
  - Musculoskeletal stiffness [Unknown]
  - Muscular weakness [Unknown]
  - Pain in extremity [Unknown]
  - Snoring [Unknown]
  - Myalgia [Unknown]
